FAERS Safety Report 5525586-5 (Version None)
Quarter: 2007Q4

REPORT INFORMATION
  Report Type: 
  Country: None (occurrence: None)
  Receive Date: 20071126
  Receipt Date: 20071126
  Transmission Date: 20080405
  Serious: Yes (Other)
  Sender: FDA-Public Use
  Company Number: D0054634A

PATIENT
  Age: 48 Year
  Sex: Male

DRUGS (1)
  1. ELMENDOS [Suspect]
     Dosage: 150MG TWICE PER DAY
     Route: 048

REACTIONS (1)
  - VISUAL ACUITY REDUCED [None]
